FAERS Safety Report 19092314 (Version 1)
Quarter: 2021Q2

REPORT INFORMATION
  Report Type: Spontaneous
  Country: US (occurrence: US)
  Receive Date: 20210405
  Receipt Date: 20210405
  Transmission Date: 20210717
  Serious: No
  Sender: FDA-Public Use
  Company Number: US-DSJP-DSU-2021-109570

PATIENT
  Sex: Female
  Weight: 96.15 kg

DRUGS (6)
  1. BENICAR [Suspect]
     Active Substance: OLMESARTAN MEDOXOMIL
     Dosage: ONE TABLET EVERY OTHER DAY
     Route: 048
  2. BENICAR [Suspect]
     Active Substance: OLMESARTAN MEDOXOMIL
     Dosage: ONE TABLET A DAY
     Route: 048
  3. OLMESARTAN [Suspect]
     Active Substance: OLMESARTAN
     Dosage: ONE TABLET A DAY
     Route: 048
  4. BENICAR [Suspect]
     Active Substance: OLMESARTAN MEDOXOMIL
     Dosage: 1/2 TABLET A DAY
     Route: 048
     Dates: start: 2011, end: 2015
  5. BENICAR [Suspect]
     Active Substance: OLMESARTAN MEDOXOMIL
     Indication: HYPERTENSION
     Dosage: ONE TABLET A DAY
     Route: 048
     Dates: start: 2006, end: 2011
  6. OLMESARTAN [Suspect]
     Active Substance: OLMESARTAN
     Indication: HYPERTENSION
     Dosage: ONE TABLET A DAY
     Route: 048
     Dates: start: 2015

REACTIONS (4)
  - Headache [Unknown]
  - Dizziness [Unknown]
  - Incorrect dose administered [Unknown]
  - Heart rate increased [Unknown]

NARRATIVE: CASE EVENT DATE: 2011
